FAERS Safety Report 4354453-8 (Version None)
Quarter: 2004Q2

REPORT INFORMATION
  Report Type: 
  Country: None (occurrence: None)
  Receive Date: 20040503
  Receipt Date: 20040420
  Transmission Date: 20050107
  Serious: Yes (Hospitalization)
  Sender: FDA-Public Use
  Company Number: 2004016767

PATIENT
  Age: 80 Year
  Sex: Male

DRUGS (3)
  1. CARDENALIN (DOXAZOSIN) [Suspect]
     Indication: HYPERTENSION
     Dosage: ORAL
     Route: 048
     Dates: end: 20040226
  2. ALL OTEHR THERAPETUTIC PRODUCTS (ALL OTHER THEREPEUTIC PRODUCTS) [Suspect]
     Indication: ILL-DEFINED DISORDER
  3. CILNIDIPINE (CILNIDIPINE) [Concomitant]

REACTIONS (4)
  - BLOOD GLUCOSE INCREASED [None]
  - ECZEMA [None]
  - GENERALISED ERYTHEMA [None]
  - GENERALISED OEDEMA [None]
